FAERS Safety Report 23871391 (Version 1)
Quarter: 2024Q2

REPORT INFORMATION
  Report Type: Spontaneous
  Country: US (occurrence: US)
  Receive Date: 20240519
  Receipt Date: 20240519
  Transmission Date: 20240715
  Serious: Yes (Death)
  Sender: FDA-Public Use
  Company Number: US-AUROBINDO-AUR-APL-2024-012293

PATIENT
  Age: 88 Year
  Sex: Male
  Weight: 68.03 kg

DRUGS (2)
  1. GUAIFENESIN [Suspect]
     Active Substance: GUAIFENESIN
     Indication: Product used for unknown indication
     Dosage: 600 MILLIGRAM
     Route: 065
     Dates: start: 20240210
  2. URISTAT [Concomitant]
     Active Substance: PHENAZOPYRIDINE HYDROCHLORIDE
     Indication: Cystitis
     Dosage: UNK
     Route: 065

REACTIONS (2)
  - Death [Fatal]
  - Vision blurred [Unknown]

NARRATIVE: CASE EVENT DATE: 20240211
